FAERS Safety Report 9862511 (Version 2)
Quarter: 2014Q1

REPORT INFORMATION
  Report Type: Spontaneous
  Country: CA (occurrence: CA)
  Receive Date: 20140203
  Receipt Date: 20140203
  Transmission Date: 20141002
  Serious: Yes (Hospitalization)
  Sender: FDA-Public Use
  Company Number: CA-BAXTER-2013BAX051801

PATIENT
  Age: 56 Year
  Sex: Male

DRUGS (3)
  1. DIANEAL PD4 SOLUTION WITH 2.5% DEXTROSE AND 2.5 MEQ/L CALCIUM [Suspect]
     Indication: NEPHROPATHY
     Route: 033
     Dates: start: 20121119
  2. DIANEAL PD4 SOLUTION WITH 4.25% DEXTROSE AND 2.5 MEQ/L CALCIUM [Suspect]
     Indication: NEPHROPATHY
     Route: 033
     Dates: start: 20121119
  3. EXTRANEAL [Suspect]
     Indication: NEPHROPATHY
     Route: 033
     Dates: start: 20121119

REACTIONS (2)
  - Gangrene [Recovering/Resolving]
  - Weight decreased [Recovering/Resolving]
